FAERS Safety Report 4814890-1 (Version None)
Quarter: 2005Q4

REPORT INFORMATION
  Report Type: 
  Country: None (occurrence: None)
  Receive Date: 20051028
  Receipt Date: 20051017
  Transmission Date: 20060501
  Serious: Yes (Hospitalization)
  Sender: FDA-Public Use
  Company Number: US-ROCHE-421281

PATIENT
  Age: 53 Year
  Sex: Female
  Weight: 67 kg

DRUGS (7)
  1. CAPECITABINE [Suspect]
     Indication: BREAST CANCER
     Dosage: GIVEN ON DAYS 1 TO 14 EVERY THREE WEEKS
     Route: 048
     Dates: start: 20050818, end: 20051015
  2. DOCETAXEL [Suspect]
     Indication: BREAST CANCER
     Route: 042
     Dates: start: 20050818
  3. DOXORUBICIN HCL [Suspect]
     Indication: BREAST CANCER
     Dosage: FOR 4 CYCLES
     Route: 042
  4. CYCLOPHOSPHAMIDE [Suspect]
     Indication: BREAST CANCER
     Dosage: FOR 4 CYCLES
     Route: 042
  5. LEVOXYL [Concomitant]
     Indication: HYPOTHYROIDISM
     Route: 048
     Dates: start: 20030615
  6. ALLEGRA [Concomitant]
     Route: 048
     Dates: start: 20000615
  7. CALCIUM GLUCONATE [Concomitant]
     Route: 048
     Dates: start: 20020615

REACTIONS (3)
  - CELLULITIS [None]
  - NAIL OPERATION [None]
  - ONYCHOMYCOSIS [None]
